FAERS Safety Report 10227873 (Version 1)
Quarter: 2014Q2

REPORT INFORMATION
  Report Type: Spontaneous
  Country: US (occurrence: US)
  Receive Date: 20140610
  Receipt Date: 20140610
  Transmission Date: 20141212
  Serious: Yes (Other)
  Sender: FDA-Public Use
  Company Number: US-PFIZER INC-2014153147

PATIENT
  Sex: Female

DRUGS (1)
  1. XALKORI [Suspect]
     Indication: SARCOMA
     Dosage: UNK

REACTIONS (3)
  - Off label use [Unknown]
  - Pancytopenia [Unknown]
  - Bone marrow failure [Unknown]
